FAERS Safety Report 8505315-3 (Version None)
Quarter: 2012Q3

REPORT INFORMATION
  Report Type: 
  Country: None (occurrence: None)
  Receive Date: 20120712
  Receipt Date: 20120704
  Transmission Date: 20120928
  Serious: Yes (Other)
  Sender: FDA-Public Use
  Company Number: CO-PFIZER INC-2012161255

PATIENT
  Age: 71 Year
  Sex: Female

DRUGS (4)
  1. CILOSTAZOL [Concomitant]
     Indication: BLOOD PRESSURE
     Dosage: UNK
     Route: 048
     Dates: start: 19920101
  2. TIROXINA [Concomitant]
     Indication: THYROID DISORDER
     Dosage: UNK
     Route: 048
     Dates: start: 20070101
  3. TOLTERODINE TARTRATE [Suspect]
     Indication: VASCULITIS
     Dosage: 2 MG, 1X/DAY
     Route: 048
     Dates: start: 20120401
  4. TOLTERODINE TARTRATE [Suspect]
     Indication: POLLAKIURIA

REACTIONS (1)
  - PAIN IN EXTREMITY [None]
